FAERS Safety Report 9681470 (Version 5)
Quarter: 2014Q1

REPORT INFORMATION
  Report Type: Spontaneous
  Country: GB (occurrence: GB)
  Receive Date: 20131111
  Receipt Date: 20140326
  Transmission Date: 20141002
  Serious: Yes (Death)
  Sender: FDA-Public Use
  Company Number: GB-BRISTOL-MYERS SQUIBB COMPANY-17475781

PATIENT
  Age: 71 Year
  Sex: Female
  Weight: 66 kg

DRUGS (2)
  1. YERVOY [Suspect]
     Indication: MALIGNANT MELANOMA
     Dosage: NOT KNOWN
     Dates: start: 20121217, end: 20130118
  2. MORPHINE [Concomitant]

REACTIONS (4)
  - Pulmonary oedema [Fatal]
  - Intestinal perforation [Fatal]
  - Colitis [Fatal]
  - Myocardial infarction [Fatal]
